FAERS Safety Report 5512666-3 (Version None)
Quarter: 2007Q4

REPORT INFORMATION
  Report Type: 
  Country: None (occurrence: None)
  Receive Date: 20071108
  Receipt Date: 20071028
  Transmission Date: 20080405
  Serious: Yes (Hospitalization, Other)
  Sender: FDA-Public Use
  Company Number: 2007SP021800

PATIENT
  Age: 52 Year
  Sex: Male

DRUGS (6)
  1. REBETOL [Suspect]
     Indication: DRUG USE FOR UNKNOWN INDICATION
     Dosage: PO
     Route: 048
     Dates: start: 20070731, end: 20070901
  2. REBETOL [Suspect]
     Indication: DRUG USE FOR UNKNOWN INDICATION
     Dosage: PO
     Route: 048
     Dates: end: 20071011
  3. REBETOL [Suspect]
     Indication: DRUG USE FOR UNKNOWN INDICATION
     Dosage: PO
     Route: 048
     Dates: start: 20071023
  4. PEG-INTRON [Suspect]
     Indication: DRUG USE FOR UNKNOWN INDICATION
     Dosage: 0.5 ML; SC; 0.3 ML;SC
     Route: 058
     Dates: start: 20070731, end: 20070901
  5. PEG-INTRON [Suspect]
     Indication: DRUG USE FOR UNKNOWN INDICATION
     Dosage: 0.5 ML; SC; 0.3 ML;SC
     Route: 058
     Dates: end: 20071011
  6. PEG-INTRON [Suspect]
     Indication: DRUG USE FOR UNKNOWN INDICATION
     Dosage: 0.5 ML; SC; 0.3 ML;SC
     Route: 058
     Dates: start: 20071023

REACTIONS (8)
  - ABDOMINAL PAIN [None]
  - BLOOD URINE PRESENT [None]
  - DIARRHOEA [None]
  - EYE HAEMORRHAGE [None]
  - FATIGUE [None]
  - INFLUENZA [None]
  - MOBILITY DECREASED [None]
  - PAIN IN EXTREMITY [None]
